FAERS Safety Report 11646185 (Version 1)
Quarter: 2015Q4

REPORT INFORMATION
  Report Type: Spontaneous
  Country: US (occurrence: US)
  Receive Date: 20151020
  Receipt Date: 20151020
  Transmission Date: 20160304
  Serious: No
  Sender: FDA-Public Use
  Company Number: US-ROCHE-1606391

PATIENT
  Age: 64 Year
  Sex: Female
  Weight: 61.74 kg

DRUGS (3)
  1. ESBRIET [Suspect]
     Active Substance: PIRFENIDONE
     Indication: IDIOPATHIC PULMONARY FIBROSIS
     Route: 048
     Dates: start: 20150504
  2. ESBRIET [Suspect]
     Active Substance: PIRFENIDONE
     Dosage: RESTARTED
     Route: 048
     Dates: start: 201508
  3. ESBRIET [Suspect]
     Active Substance: PIRFENIDONE
     Dosage: 3 CAPSULES THRICE A DAY
     Route: 048
     Dates: start: 20150604, end: 20150629

REACTIONS (3)
  - Rash [Recovering/Resolving]
  - Abdominal pain [Recovering/Resolving]
  - Sciatica [Unknown]

NARRATIVE: CASE EVENT DATE: 20150629
